FAERS Safety Report 6134985-2 (Version None)
Quarter: 2009Q1

REPORT INFORMATION
  Report Type: 
  Country: None (occurrence: None)
  Receive Date: 20090327
  Receipt Date: 20090317
  Transmission Date: 20090719
  Serious: Yes (Other)
  Sender: FDA-Public Use
  Company Number: US-JNJFOC-20090204400

PATIENT
  Sex: Male

DRUGS (6)
  1. REMICADE [Suspect]
     Indication: RHEUMATOID ARTHRITIS
     Route: 042
  2. METHOTREXATE [Concomitant]
     Indication: RHEUMATOID ARTHRITIS
  3. LOPRESSOR [Concomitant]
     Indication: BLOOD PRESSURE
  4. NORVASC [Concomitant]
     Indication: BLOOD PRESSURE
  5. HYZAAR [Concomitant]
     Indication: BLOOD PRESSURE
  6. VYTORIN [Concomitant]
     Indication: BLOOD CHOLESTEROL

REACTIONS (1)
  - PROSTATE CANCER RECURRENT [None]
